FAERS Safety Report 5148363-6 (Version None)
Quarter: 2006Q4

REPORT INFORMATION
  Report Type: 
  Country: None (occurrence: None)
  Receive Date: 20061106
  Receipt Date: 20061023
  Transmission Date: 20070319
  Serious: Yes (Congenital Anomaly, Other)
  Sender: FDA-Public Use
  Company Number: 2006130519

PATIENT
  Sex: Female

DRUGS (1)
  1. LYRICA [Suspect]
     Indication: FIBROMYALGIA
     Dosage: 75 MG (75 MG, 1 IN 1 D)
     Dates: start: 20060615

REACTIONS (16)
  - ABDOMINAL PAIN [None]
  - AMNESIA [None]
  - CONSTIPATION [None]
  - DIARRHOEA [None]
  - DRY EYE [None]
  - DRY MOUTH [None]
  - DYSPHAGIA [None]
  - FALL [None]
  - FEELING DRUNK [None]
  - HEADACHE [None]
  - NAUSEA [None]
  - RASH [None]
  - SKIN IRRITATION [None]
  - URINARY RETENTION [None]
  - VERTIGO [None]
  - WEIGHT INCREASED [None]
